FAERS Safety Report 9266818 (Version 1)
Quarter: 2013Q2

REPORT INFORMATION
  Report Type: Spontaneous
  Country: US (occurrence: US)
  Receive Date: 20130502
  Receipt Date: 20130502
  Transmission Date: 20140414
  Serious: Yes (Hospitalization, Other)
  Sender: FDA-Public Use
  Company Number: US-UCBSA-084326

PATIENT
  Age: 43 Year
  Sex: Male

DRUGS (3)
  1. VIMPAT [Suspect]
  2. VIMPAT [Suspect]
  3. LEVETIRACETAM [Suspect]

REACTIONS (6)
  - Convulsion [Unknown]
  - Encephalopathy [Unknown]
  - Respiratory failure [Unknown]
  - Sepsis [Unknown]
  - Hypernatraemia [Unknown]
  - Hyponatraemia [Unknown]
